FAERS Safety Report 7314580-X (Version None)
Quarter: 2011Q1

REPORT INFORMATION
  Report Type: 
  Country: None (occurrence: None)
  Receive Date: 20110225
  Receipt Date: 20101007
  Transmission Date: 20110831
  Serious: No
  Sender: FDA-Public Use
  Company Number: US-MYLANLABS-2010S1018540

PATIENT
  Age: 31 Year
  Sex: Female

DRUGS (5)
  1. CONTRACEPTIVE [Concomitant]
     Indication: CONTRACEPTION
  2. AMNESTEEM [Suspect]
     Indication: ACNE
     Route: 048
     Dates: start: 20100501, end: 20100501
  3. CLARAVIS [Suspect]
     Indication: ACNE
     Route: 048
     Dates: start: 20100601, end: 20100701
  4. MULTIVITAMIN [Concomitant]
     Indication: VITAMIN SUPPLEMENTATION
  5. AMNESTEEM [Suspect]
     Route: 048
     Dates: start: 20100801, end: 20101005

REACTIONS (1)
  - RASH [None]
